FAERS Safety Report 13880997 (Version 1)
Quarter: 2017Q3

REPORT INFORMATION
  Report Type: Spontaneous
  Country: US (occurrence: None)
  Receive Date: 20170815
  Receipt Date: 20170815
  Transmission Date: 20171127
  Serious: Yes (Hospitalization)
  Sender: FDA-Public Use
  Company Number: None

PATIENT
  Age: 83 Year
  Sex: Female

DRUGS (19)
  1. IBRANCE [Suspect]
     Active Substance: PALBOCICLIB
     Indication: BREAST CANCER
     Dosage: 125MG  DS 1-21 OF 28D CYC  QD DS 1-21 OI
     Route: 048
     Dates: start: 20170304
  2. MUCINEX [Concomitant]
     Active Substance: GUAIFENESIN
  3. IMODIUM AD [Concomitant]
     Active Substance: LOPERAMIDE HYDROCHLORIDE
  4. ROCEPHIN [Concomitant]
     Active Substance: CEFTRIAXONE SODIUM
  5. VIT B50 [Concomitant]
  6. TURMERIC [Concomitant]
     Active Substance: HERBALS\TURMERIC
  7. LASIX [Concomitant]
     Active Substance: FUROSEMIDE
  8. COQ10 [Concomitant]
     Active Substance: UBIDECARENONE
  9. NIACIN ER [Concomitant]
     Active Substance: NIACIN
  10. DEEP BLUE GEL RELIEF [Concomitant]
  11. OMEGA III [Concomitant]
  12. FEMARA [Concomitant]
     Active Substance: LETROZOLE
  13. BIOTIN [Concomitant]
     Active Substance: BIOTIN
  14. HYDRALAZINE [Concomitant]
     Active Substance: HYDRALAZINE HYDROCHLORIDE
  15. INTESTINEX [Concomitant]
  16. WOMENS ONE A DAY [Concomitant]
  17. TRIAMCINOLON [Concomitant]
  18. LISINOPRIL. [Concomitant]
     Active Substance: LISINOPRIL
  19. OSTEO [Concomitant]
     Active Substance: CHONDROITIN SULFATE (BOVINE)\GLUCOSAMINE SULFATE

REACTIONS (4)
  - Cystitis [None]
  - Dizziness [None]
  - Intestinal obstruction [None]
  - Dehydration [None]

NARRATIVE: CASE EVENT DATE: 20170807
